FAERS Safety Report 5209334-4 (Version None)
Quarter: 2006Q4

REPORT INFORMATION
  Report Type: 
  Country: None (occurrence: None)
  Receive Date: 20061101
  Receipt Date: 20060511
  Transmission Date: 20070319
  Serious: Yes (Other)
  Sender: FDA-Public Use
  Company Number: DSA_28196_2006

PATIENT
  Age: 50 Year
  Sex: Female

DRUGS (5)
  1. ATIVAN [Suspect]
     Indication: ANXIETY
     Dosage: 2 MG BID PO
     Route: 048
  2. KADIAN [Suspect]
     Indication: BACK PAIN
     Dosage: 50 MG BID PO
     Route: 048
  3. ROXICODONE [Suspect]
     Indication: BACK PAIN
     Dosage: 5 MG TID PO
     Route: 048
  4. NEURONTIN [Suspect]
     Indication: BACK PAIN
     Dosage: 800 MG TID PO
     Route: 048
     Dates: start: 20060302, end: 20060509
  5. NEURONTIN [Suspect]
     Indication: BACK PAIN
     Dosage: 600 MG TID PO
     Route: 048
     Dates: start: 20050101, end: 20060301

REACTIONS (1)
  - LIVER FUNCTION TEST ABNORMAL [None]
